FAERS Safety Report 6804528-6 (Version None)
Quarter: 2010Q2

REPORT INFORMATION
  Report Type: 
  Country: None (occurrence: None)
  Receive Date: 20100628
  Receipt Date: 20100628
  Transmission Date: 20101027
  Serious: Yes (Life-Threatening)
  Sender: FDA-Public Use
  Company Number: None

PATIENT
  Age: 33 Year
  Sex: Female
  Weight: 57.6068 kg

DRUGS (1)
  1. CYMBALTA [Suspect]
     Indication: PAIN MANAGEMENT
     Dosage: 40 MG ONCE PER DAY PO
     Route: 048
     Dates: start: 20060825, end: 20060826

REACTIONS (4)
  - APATHY [None]
  - DEPRESSION [None]
  - LABELLED DRUG-DRUG INTERACTION MEDICATION ERROR [None]
  - SUICIDE ATTEMPT [None]
